FAERS Safety Report 11434152 (Version 1)
Quarter: 2015Q3

REPORT INFORMATION
  Report Type: Spontaneous
  Country: US (occurrence: None)
  Receive Date: 20150828
  Receipt Date: 20150828
  Transmission Date: 20151125
  Serious: Yes (Other)
  Sender: FDA-Public Use
  Company Number: None

PATIENT
  Age: 11 Year
  Sex: Male
  Weight: 29.03 kg

DRUGS (4)
  1. METHYLPHENID [Suspect]
     Active Substance: METHYLPHENIDATE
     Indication: ATTENTION DEFICIT/HYPERACTIVITY DISORDER
     Dosage: 18 MG  1 PILL  ONCE DAILY TAKEN BY MOUTH
     Route: 048
     Dates: start: 20150523, end: 20150523
  2. CEPHDINIR [Concomitant]
  3. METHYLPHENID [Suspect]
     Active Substance: METHYLPHENIDATE
     Indication: FATIGUE
     Dosage: 18 MG  1 PILL  ONCE DAILY TAKEN BY MOUTH
     Route: 048
     Dates: start: 20150523, end: 20150523
  4. LANSOPRAZOLE. [Concomitant]
     Active Substance: LANSOPRAZOLE

REACTIONS (9)
  - Nightmare [None]
  - Anxiety [None]
  - Nausea [None]
  - Feeling jittery [None]
  - Eating disorder [None]
  - Insomnia [None]
  - Crying [None]
  - Feeling abnormal [None]
  - Parosmia [None]

NARRATIVE: CASE EVENT DATE: 20150523
